FAERS Safety Report 20306649 (Version 3)
Quarter: 2022Q4

REPORT INFORMATION
  Report Type: Spontaneous
  Country: US (occurrence: US)
  Receive Date: 20220106
  Receipt Date: 20221208
  Transmission Date: 20230113
  Serious: Yes (Hospitalization)
  Sender: FDA-Public Use
  Company Number: US-TEVA-2021-US-1995652

PATIENT
  Age: 9 Year
  Sex: Female

DRUGS (1)
  1. VALPROIC ACID [Suspect]
     Active Substance: VALPROIC ACID
     Indication: Seizure
     Dosage: 3 TIMES DAILY
     Route: 048

REACTIONS (2)
  - Thrombocytopenia [Recovered/Resolved]
  - Megakaryocytes abnormal [Recovered/Resolved]
